FAERS Safety Report 5445433-X (Version None)
Quarter: 2007Q3

REPORT INFORMATION
  Report Type: 
  Country: None (occurrence: None)
  Receive Date: 20070906
  Receipt Date: 20070731
  Transmission Date: 20080115
  Serious: No
  Sender: FDA-Public Use
  Company Number: A0661919A

PATIENT
  Sex: Female
  Weight: 95.9 kg

DRUGS (5)
  1. REQUIP [Suspect]
     Indication: RESTLESS LEGS SYNDROME
     Dosage: 1MG TWICE PER DAY
     Route: 048
     Dates: start: 20051015, end: 20061101
  2. SYNTHROID [Concomitant]
  3. DICYCLOMINE [Concomitant]
  4. LEXAPRO [Concomitant]
  5. CYMBALTA [Concomitant]

REACTIONS (2)
  - GAMBLING [None]
  - OBSESSIVE-COMPULSIVE DISORDER [None]
